FAERS Safety Report 24444522 (Version 2)
Quarter: 2024Q4

REPORT INFORMATION
  Report Type: Report from Study
  Country: US (occurrence: US)
  Receive Date: 20241016
  Receipt Date: 20241017
  Transmission Date: 20250115
  Serious: No
  Sender: ROCHE
  Company Number: US-ROCHE-2837599

PATIENT
  Age: 58 Year
  Sex: Female
  Weight: 72.27 kg

DRUGS (9)
  1. RITUXAN [Suspect]
     Active Substance: RITUXIMAB
     Indication: Granulomatosis with polyangiitis
     Dosage: THEN Q 6 MONTHS
     Route: 041
  2. RITUXAN [Suspect]
     Active Substance: RITUXIMAB
     Indication: Asthma
  3. RITUXAN [Suspect]
     Active Substance: RITUXIMAB
     Indication: Arteritis
  4. WELLBUTRIN SR [Concomitant]
     Active Substance: BUPROPION HYDROCHLORIDE
     Dosage: 1 TABLET ORALLY ONCE A DAY
     Route: 048
  5. PROZAC [Concomitant]
     Active Substance: FLUOXETINE HYDROCHLORIDE
     Dosage: 1 CAPSULE IN MORNING ORALLY ONCE A DAY
     Route: 048
  6. PROBIOTICS NOS [Concomitant]
     Active Substance: PROBIOTICS NOS
  7. BUSPIRONE HCL [Concomitant]
     Active Substance: BUSPIRONE HYDROCHLORIDE
     Dosage: 1 TABLET ORALLY TWICE A DAY
     Route: 048
  8. MONTELUKAST SODIUM [Concomitant]
     Active Substance: MONTELUKAST SODIUM
     Dosage: 1 TABLET ORALLY ONCE A DAY
     Route: 048
     Dates: start: 20190102
  9. BREO ELLIPTA [Concomitant]
     Active Substance: FLUTICASONE FUROATE\VILANTEROL TRIFENATATE
     Dosage: INHALATION ONCE A DAY
     Route: 055
     Dates: start: 20190102

REACTIONS (2)
  - Off label use [Unknown]
  - No adverse event [Unknown]
